FAERS Safety Report 6860046-0 (Version None)
Quarter: 2010Q3

REPORT INFORMATION
  Report Type: 
  Country: None (occurrence: None)
  Receive Date: 20100720
  Receipt Date: 20100715
  Transmission Date: 20110219
  Serious: Yes (Hospitalization, Other)
  Sender: FDA-Public Use
  Company Number: US-PFIZER INC-2010088448

PATIENT
  Sex: Female

DRUGS (4)
  1. ATGAM [Suspect]
     Indication: APLASTIC ANAEMIA
     Dosage: UNK
  2. SOLIRIS [Suspect]
     Indication: APLASTIC ANAEMIA
     Dosage: UNK
     Route: 042
  3. CYCLOSPORINE [Suspect]
     Indication: APLASTIC ANAEMIA
     Dosage: UNK
     Dates: start: 20100501, end: 20100602
  4. PREDNISONE [Concomitant]
     Dosage: UNK
     Dates: end: 20100602

REACTIONS (9)
  - BLOOD LACTATE DEHYDROGENASE INCREASED [None]
  - DYSSTASIA [None]
  - GAIT DISTURBANCE [None]
  - HYPERAESTHESIA [None]
  - PAIN IN EXTREMITY [None]
  - PLATELET COUNT DECREASED [None]
  - POST TRANSPLANT DISTAL LIMB SYNDROME [None]
  - SERUM SICKNESS [None]
  - SPINAL DEFORMITY [None]
